FAERS Safety Report 4840221-7 (Version None)
Quarter: 2005Q4

REPORT INFORMATION
  Report Type: 
  Country: None (occurrence: None)
  Receive Date: 20051129
  Receipt Date: 20051118
  Transmission Date: 20060501
  Serious: Yes (Hospitalization, Other)
  Sender: FDA-Public Use
  Company Number: US-MERCK-0511USA03471

PATIENT
  Sex: Female
  Weight: 81 kg

DRUGS (6)
  1. VIOXX [Suspect]
     Indication: ARTHRITIS
     Route: 048
     Dates: start: 19990101
  2. VIOXX [Suspect]
     Route: 048
  3. WELLBUTRIN [Concomitant]
     Route: 065
  4. PLAVIX [Concomitant]
     Route: 065
  5. ZOCOR [Concomitant]
     Route: 065
  6. ZETIA [Concomitant]
     Route: 065

REACTIONS (6)
  - ARTHROPATHY [None]
  - BACK DISORDER [None]
  - CARDIAC DISORDER [None]
  - CERVICAL VERTEBRAL FRACTURE [None]
  - MYOCARDIAL INFARCTION [None]
  - ROAD TRAFFIC ACCIDENT [None]
